FAERS Safety Report 21985206 (Version 2)
Quarter: 2023Q1

REPORT INFORMATION
  Report Type: Spontaneous
  Country: GB (occurrence: GB)
  Receive Date: 20230213
  Receipt Date: 20230228
  Transmission Date: 20230418
  Serious: Yes (Hospitalization, Other)
  Sender: FDA-Public Use
  Company Number: GB-MYLANLABS-2023M1014693

PATIENT
  Age: 60 Year
  Sex: Male

DRUGS (1)
  1. CLOZARIL [Suspect]
     Active Substance: CLOZAPINE
     Indication: Schizophrenia
     Dosage: UNK (ESTIMATED STOP DATE: 06-FEB-2023)
     Route: 048
     Dates: start: 20160912

REACTIONS (5)
  - Vomiting [Unknown]
  - Suicidal ideation [Unknown]
  - Mental impairment [Unknown]
  - Food poisoning [Unknown]
  - Malaise [Unknown]

NARRATIVE: CASE EVENT DATE: 20230201
